FAERS Safety Report 9435425 (Version 2)
Quarter: 2013Q3

REPORT INFORMATION
  Report Type: Report from Study
  Country: GB (occurrence: GB)
  Receive Date: 20130801
  Receipt Date: 20130802
  Transmission Date: 20140515
  Serious: Yes (Other)
  Sender: FDA-Public Use
  Company Number: GB-VERTEX PHARMACEUTICALS INC-2013-007478

PATIENT
  Age: 44 Year
  Sex: Male

DRUGS (4)
  1. VX-950 (TELAPREVIR) [Suspect]
     Indication: HEPATITIS C
     Dosage: 750 MG, TID, TABLET
     Route: 048
     Dates: start: 20130611
  2. PEGINTERFERON ALFA-2B [Suspect]
     Indication: HEPATITIS C
     Dosage: DOSAGE FORM: INJECTION
     Route: 058
     Dates: start: 20130611
  3. RIBAVIRIN [Suspect]
     Indication: HEPATITIS C
     Dosage: DOSAGE FORM: TABLET
     Route: 048
     Dates: start: 20130611
  4. FLUOXETINE [Concomitant]
     Indication: DEPRESSION
     Dosage: UNK

REACTIONS (7)
  - Depression [Not Recovered/Not Resolved]
  - Malaise [Not Recovered/Not Resolved]
  - Depressed mood [Not Recovered/Not Resolved]
  - Vision blurred [Not Recovered/Not Resolved]
  - Mood swings [Not Recovered/Not Resolved]
  - Lethargy [Not Recovered/Not Resolved]
  - Nausea [Not Recovered/Not Resolved]
